FAERS Safety Report 10597320 (Version 1)
Quarter: 2014Q4

REPORT INFORMATION
  Report Type: Spontaneous
  Country: GB (occurrence: GB)
  Receive Date: 20141121
  Receipt Date: 20141121
  Transmission Date: 20150529
  Serious: Yes (Hospitalization, Other)
  Sender: FDA-Public Use
  Company Number: GB-AUROBINDO-AUR-APL-2014-12098

PATIENT
  Age: 87 Year
  Sex: Male

DRUGS (12)
  1. RAMIPRIL CAPSULES 2.5MG (RAMIPRIL) CAPSULE, 2.5MG [Suspect]
     Active Substance: RAMIPRIL
     Dosage: 2.5 MG, ONCE A DAY
     Route: 048
     Dates: start: 20110616, end: 20110719
  2. AMITRIPTYLINE [Suspect]
     Active Substance: AMITRIPTYLINE
     Indication: HERPES ZOSTER
  3. RAMIPRIL CAPSULES 2.5MG (RAMIPRIL) CAPSULE, 2.5MG [Suspect]
     Active Substance: RAMIPRIL
     Indication: PRODUCT USED FOR UNKNOWN INDICATION
     Dosage: 1.5 MG, ONCE A DAY
     Route: 048
     Dates: start: 20110520, end: 20110615
  4. OMEPRAZOLE GASTRO-RESISTANT CAPSULES, HARD 20 MG [Suspect]
     Active Substance: OMEPRAZOLE
     Indication: PRODUCT USED FOR UNKNOWN INDICATION
     Dosage: 20 MG, ONCE A DAY
     Route: 048
     Dates: end: 20110719
  5. QUININE SULFATE. [Concomitant]
     Active Substance: QUININE SULFATE
     Indication: PRODUCT USED FOR UNKNOWN INDICATION
     Dosage: 200 MG, ONCE A DAY
     Route: 065
  6. BENDROFLUMETHIAZIDE [Suspect]
     Active Substance: BENDROFLUMETHIAZIDE
     Indication: PRODUCT USED FOR UNKNOWN INDICATION
     Dosage: 2.5 MG, ONCE A DAY
     Route: 048
     Dates: end: 20110719
  7. COCODAMOL [Suspect]
     Active Substance: ACETAMINOPHEN\CODEINE PHOSPHATE
     Indication: HERPES ZOSTER
  8. HYDROXOCOBALAMIN [Concomitant]
     Active Substance: HYDROXOCOBALAMIN
     Indication: PRODUCT USED FOR UNKNOWN INDICATION
     Dosage: 1 MG, ONCE IN 3 MONTHS
     Route: 065
  9. IPRATROPIUM BROMIDE. [Concomitant]
     Active Substance: IPRATROPIUM BROMIDE
     Indication: PRODUCT USED FOR UNKNOWN INDICATION
     Dosage: 2 DF, FOUR TIMES/DAY
     Route: 065
  10. AMITRIPTYLINE [Suspect]
     Active Substance: AMITRIPTYLINE
     Indication: ANALGESIC THERAPY
     Dosage: 20 MG, ONCE A DAY
     Route: 048
     Dates: end: 20110719
  11. COCODAMOL [Suspect]
     Active Substance: ACETAMINOPHEN\CODEINE PHOSPHATE
     Indication: ANALGESIC THERAPY
     Dosage: 2 DF, FOUR TIMES/DAY
     Route: 048
     Dates: end: 20110719
  12. CLENIL MODULITE [Concomitant]
     Active Substance: BECLOMETHASONE DIPROPIONATE
     Indication: PRODUCT USED FOR UNKNOWN INDICATION
     Dosage: 2 DF, TWO TIMES A DAY
     Route: 065

REACTIONS (12)
  - Wheezing [Recovering/Resolving]
  - Hypophagia [Unknown]
  - Dyspnoea [Recovering/Resolving]
  - Hyponatraemia [Recovered/Resolved]
  - Drug ineffective [Unknown]
  - Hypoxia [Unknown]
  - Lower respiratory tract infection [Recovering/Resolving]
  - Vomiting [Unknown]
  - Chronic obstructive pulmonary disease [Recovered/Resolved]
  - Dehydration [Unknown]
  - Acute kidney injury [Recovered/Resolved]
  - Confusional state [Recovered/Resolved]

NARRATIVE: CASE EVENT DATE: 20110718
